FAERS Safety Report 10733762 (Version 5)
Quarter: 2015Q1

REPORT INFORMATION
  Report Type: Report from Study
  Country: IE (occurrence: IE)
  Receive Date: 20150123
  Receipt Date: 20150316
  Transmission Date: 20150721
  Serious: Yes (Hospitalization, Other)
  Sender: FDA-Public Use
  Company Number: IE-SHIRE-IE201500464

PATIENT
  Age: 12 Year
  Sex: Male

DRUGS (9)
  1. IDURSULFASE [Suspect]
     Active Substance: IDURSULFASE
     Dosage: 18 MG, OTHER (ALTERNATING WEEKLY WITH 12 MG DOSE)
     Route: 041
     Dates: start: 20120119
  2. IDURSULFASE [Suspect]
     Active Substance: IDURSULFASE
     Dosage: UNK, 1X/WEEK
     Route: 041
     Dates: start: 20100216
  3. IDURSULFASE [Suspect]
     Active Substance: IDURSULFASE
     Dosage: 0.48 MG/KG, 1X/WEEK
     Route: 041
     Dates: start: 20110124
  4. PARACETAMOL [Concomitant]
     Active Substance: ACETAMINOPHEN
     Indication: PRODUCT USED FOR UNKNOWN INDICATION
     Dosage: UNK, UNKNOWN
     Route: 065
  5. VENTOLIN [Concomitant]
     Active Substance: ALBUTEROL SULFATE
     Indication: PRODUCT USED FOR UNKNOWN INDICATION
     Dosage: UNK, UNKNOWN
     Route: 065
  6. CLONAMOX [Concomitant]
     Indication: TONSILLITIS
     Dosage: UNK, UNKNOWN
     Route: 065
     Dates: start: 20150110
  7. IDURSULFASE [Suspect]
     Active Substance: IDURSULFASE
     Dosage: 0.5 MG/KG, 1X/WEEK
     Route: 041
     Dates: start: 20100518
  8. BECOTIDE [Concomitant]
     Active Substance: BECLOMETHASONE DIPROPIONATE
     Indication: PRODUCT USED FOR UNKNOWN INDICATION
     Dosage: UNK, UNKNOWN
     Route: 065
  9. IDURSULFASE [Suspect]
     Active Substance: IDURSULFASE
     Indication: MUCOPOLYSACCHARIDOSIS II
     Dosage: 12 MG, OTHER (ALTERNATING WEEKLY WITH 18 MG DOSE)
     Route: 041
     Dates: start: 20120119

REACTIONS (3)
  - Device related infection [Recovered/Resolved]
  - Thrombosis in device [Recovered/Resolved]
  - Device occlusion [Recovered/Resolved]

NARRATIVE: CASE EVENT DATE: 201501
